FAERS Safety Report 7269827-5 (Version None)
Quarter: 2010Q4

REPORT INFORMATION
  Report Type: 
  Country: None (occurrence: None)
  Receive Date: 20101130
  Receipt Date: 20091207
  Transmission Date: 20110411
  Serious: Yes (Hospitalization, Other)
  Sender: FDA-Public Use
  Company Number: 2009SP040697

PATIENT
  Age: 45 Year
  Sex: Female
  Weight: 86.1834 kg

DRUGS (1)
  1. NUVARING [Suspect]
     Indication: MENSTRUAL CYCLE MANAGEMENT
     Dates: start: 20071001, end: 20071201

REACTIONS (4)
  - ANTIPHOSPHOLIPID SYNDROME [None]
  - HAEMANGIOMA OF LIVER [None]
  - HEPATIC CYST [None]
  - PULMONARY EMBOLISM [None]
